FAERS Safety Report 10174709 (Version 3)
Quarter: 2014Q2

REPORT INFORMATION
  Report Type: Report from Study
  Country: US (occurrence: US)
  Receive Date: 20140515
  Receipt Date: 20140630
  Transmission Date: 20141212
  Serious: Yes (Hospitalization)
  Sender: FDA-Public Use
  Company Number: US-BRISTOL-MYERS SQUIBB COMPANY-20728051

PATIENT
  Age: 62 Year
  Sex: Male
  Weight: 75 kg

DRUGS (9)
  1. NULOJIX [Suspect]
     Indication: RENAL TRANSPLANT
     Dosage: 05-MAR-2014, 13-MAR-2014 AND 27-MAR-2014 RESPECTIVELY. LAST DOSE ON 24APR2014
     Route: 042
     Dates: start: 20140301
  2. CELLCEPT [Suspect]
     Indication: RENAL TRANSPLANT
     Dosage: 03MAR14:250 MG
     Route: 048
     Dates: start: 20140301
  3. SENSIPAR [Concomitant]
     Dosage: TABS:ONGOING
     Dates: start: 20140429
  4. COLACE CAPS 100 MG [Concomitant]
     Dosage: ONGOING
     Dates: start: 20140407
  5. PROTONIX [Concomitant]
     Dosage: TABS:ONGOING
     Dates: start: 20140407
  6. BACTRIM [Concomitant]
     Dosage: 1DF = 1TABLET(400-80MG):ONGOING
     Dates: start: 20140303
  7. VALCYTE [Concomitant]
     Dosage: TABS:ONGOING
     Dates: start: 20140303
  8. MYCELEX [Concomitant]
     Dosage: MT TROCHE
     Dates: start: 20140303
  9. DELTASONE [Concomitant]
     Dosage: TABS
     Route: 048
     Dates: start: 20140303

REACTIONS (2)
  - Gastroenteritis [Recovered/Resolved]
  - Renal failure acute [Recovered/Resolved]
